FAERS Safety Report 7749285-4 (Version None)
Quarter: 2011Q3

REPORT INFORMATION
  Report Type: 
  Country: None (occurrence: None)
  Receive Date: 20110908
  Receipt Date: 20110901
  Transmission Date: 20111222
  Serious: Yes (Life-Threatening)
  Sender: FDA-Public Use
  Company Number: 2011SP041477

PATIENT
  Age: 5 Year

DRUGS (1)
  1. TEMODAL [Suspect]
     Indication: GLIOMA
     Dosage: 75 MG/M2;QD; 200 MG/M2;QD; 130 MG/M2;QD;

REACTIONS (9)
  - LEUKOPENIA [None]
  - THROMBOCYTOPENIA [None]
  - RADIATION SKIN INJURY [None]
  - ANAEMIA [None]
  - DISEASE PROGRESSION [None]
  - GLIOMA [None]
  - FEBRILE NEUTROPENIA [None]
  - RASH [None]
  - TOXICITY TO VARIOUS AGENTS [None]
